FAERS Safety Report 4297267-X (Version None)
Quarter: 2004Q1

REPORT INFORMATION
  Report Type: 
  Country: None (occurrence: None)
  Receive Date: 20040213
  Receipt Date: 20040203
  Transmission Date: 20041129
  Serious: Yes (Death, Hospitalization, Other)
  Sender: FDA-Public Use
  Company Number: US-JNJFOC-20031000077

PATIENT
  Age: 37 Year
  Sex: Female
  Weight: 58.9676 kg

DRUGS (13)
  1. REMICADE [Suspect]
     Dosage: 5 MG/KG, 1 IN 1 DAY, INTRAVENOUS
     Route: 042
     Dates: start: 20021015
  2. REMICADE [Suspect]
     Dosage: 5 MG/KG, 1 IN 1 DAY, INTRAVENOUS
     Route: 042
     Dates: start: 20021028
  3. REMICADE [Suspect]
     Dosage: 5 MG/KG, 1 IN 1 DAY, INTRAVENOUS
     Route: 042
     Dates: start: 20030617
  4. REMICADE [Suspect]
     Dosage: 5 MG/KG, 1 IN 1 DAY, INTRAVENOUS
     Route: 042
     Dates: start: 20030723
  5. MERCAPTOPURINE [Suspect]
     Indication: CROHN'S DISEASE
     Dates: end: 20021028
  6. ACIPHEX [Concomitant]
  7. PREDNISONE [Concomitant]
  8. ENTOCORT (BUDESONIDE) [Concomitant]
  9. MESALAMINE (MESALAMINE) [Concomitant]
  10. NARCOTIC ANALGESICS (ANALGESICS) [Concomitant]
  11. ACETAMINOPHEN [Concomitant]
  12. ANTIHISTAMINE (ANTIHISTAMINES) [Concomitant]
  13. STEROIDS (CORTICOSTEROID NOS) [Concomitant]

REACTIONS (17)
  - ABDOMINAL ADHESIONS [None]
  - ABDOMINAL PAIN [None]
  - ADENOCARCINOMA [None]
  - ARTHRALGIA [None]
  - BLOOD ALBUMIN DECREASED [None]
  - CATHETER RELATED COMPLICATION [None]
  - COLON CANCER [None]
  - DEEP VEIN THROMBOSIS [None]
  - DIARRHOEA [None]
  - DRUG INEFFECTIVE [None]
  - HAEMATOCRIT DECREASED [None]
  - LYMPHADENOPATHY [None]
  - NAUSEA [None]
  - PYREXIA [None]
  - RASH [None]
  - SMALL INTESTINE CARCINOMA METASTATIC [None]
  - VOMITING [None]
